FAERS Safety Report 20804368 (Version 7)
Quarter: 2023Q2

REPORT INFORMATION
  Report Type: Report from Study
  Country: CA (occurrence: CA)
  Receive Date: 20220509
  Receipt Date: 20230522
  Transmission Date: 20230721
  Serious: Yes (Hospitalization, Other)
  Sender: FDA-Public Use
  Company Number: CA-GLAXOSMITHKLINE-CA2022071205

PATIENT

DRUGS (8)
  1. MEPOLIZUMAB [Suspect]
     Active Substance: MEPOLIZUMAB
     Indication: Asthma
     Dosage: 100 MG, Q4W
     Route: 058
     Dates: start: 20220331
  2. MEPOLIZUMAB [Suspect]
     Active Substance: MEPOLIZUMAB
     Indication: Asthma
     Dosage: 100 MG, Q4W
     Route: 058
     Dates: start: 20220331
  3. MEPOLIZUMAB [Suspect]
     Active Substance: MEPOLIZUMAB
     Indication: Asthma
     Dosage: 100 MG, Q4W
     Route: 058
     Dates: start: 20220331
  4. MEPOLIZUMAB [Suspect]
     Active Substance: MEPOLIZUMAB
     Indication: Asthma
     Dosage: 100 MG, Q4W
     Route: 058
     Dates: start: 20220331
  5. COVID-19 VACCINE NOS [Suspect]
     Active Substance: COVID-19 VACCINE NOS
     Indication: COVID-19 prophylaxis
     Dosage: UNK
  6. COVID-19 VACCINE NOS [Suspect]
     Active Substance: COVID-19 VACCINE NOS
     Dosage: UNK
  7. COVID-19 VACCINE NOS [Suspect]
     Active Substance: COVID-19 VACCINE NOS
     Dosage: UNK
  8. COVID-19 VACCINE NOS [Suspect]
     Active Substance: COVID-19 VACCINE NOS
     Dosage: UNK, END OF JULY

REACTIONS (23)
  - Sinusitis [Unknown]
  - Swelling face [Unknown]
  - Pneumonia fungal [Unknown]
  - Cystitis [Unknown]
  - Abdominal pain [Unknown]
  - Condition aggravated [Unknown]
  - Nausea [Unknown]
  - Nasal congestion [Not Recovered/Not Resolved]
  - Pain [Unknown]
  - Headache [Unknown]
  - Dysphonia [Unknown]
  - Rhinorrhoea [Unknown]
  - Injection site pain [Unknown]
  - Dizziness [Not Recovered/Not Resolved]
  - Heart rate increased [Recovered/Resolved]
  - Chronic sinusitis [Unknown]
  - Fatigue [Unknown]
  - Hypotension [Unknown]
  - Sinus congestion [Unknown]
  - Cough [Unknown]
  - Vaccination site pain [Unknown]
  - Inappropriate schedule of product administration [Unknown]
  - Product dose omission issue [Unknown]

NARRATIVE: CASE EVENT DATE: 20220424
